FAERS Safety Report 7314741-X (Version None)
Quarter: 2011Q1

REPORT INFORMATION
  Report Type: 
  Country: None (occurrence: None)
  Receive Date: 20110225
  Receipt Date: 20101209
  Transmission Date: 20110831
  Serious: Yes (Death)
  Sender: FDA-Public Use
  Company Number: US-MYLANLABS-2010S1021685

PATIENT
  Age: 64 Year
  Sex: Male

DRUGS (9)
  1. AMNESTEEM [Suspect]
     Route: 048
     Dates: start: 20100901, end: 20101001
  2. ETOPOSIDE [Concomitant]
     Indication: GLIOBLASTOMA
  3. HYDROCORTISONE [Concomitant]
  4. LOVENOX [Concomitant]
  5. AMNESTEEM [Suspect]
     Indication: GLIOBLASTOMA
     Dosage: PATIENT TOOK 100MG BID, STRENGTH UNKNOWN
     Route: 048
     Dates: start: 20100930, end: 20101001
  6. OMEPRAZOLE [Concomitant]
  7. DEXAMETHASONE [Concomitant]
  8. KEPPRA [Concomitant]
  9. REMERON [Concomitant]

REACTIONS (2)
  - GLIOBLASTOMA [None]
  - DRUG INEFFECTIVE FOR UNAPPROVED INDICATION [None]
